FAERS Safety Report 4608029-5 (Version None)
Quarter: 2005Q1

REPORT INFORMATION
  Report Type: 
  Country: None (occurrence: None)
  Receive Date: 20050314
  Receipt Date: 20050304
  Transmission Date: 20050727
  Serious: Yes (Life-Threatening, Hospitalization)
  Sender: FDA-Public Use
  Company Number: FR-MERCK-0503FRA00023

PATIENT
  Age: 63 Year
  Sex: Female

DRUGS (5)
  1. FOSAMAX [Suspect]
     Indication: OSTEOPOROSIS
     Route: 048
     Dates: start: 20030601, end: 20041201
  2. FLUINDIONE [Suspect]
     Indication: THROMBOSIS PROPHYLAXIS
     Route: 048
     Dates: end: 20041201
  3. FLUINDIONE [Suspect]
     Route: 048
     Dates: start: 20050101
  4. AZATHIOPRINE [Concomitant]
     Indication: CROHN'S DISEASE
     Route: 048
     Dates: start: 19890101
  5. LOPERAMIDE OXIDE [Concomitant]
     Indication: DIARRHOEA
     Route: 048

REACTIONS (2)
  - ANAEMIA [None]
  - SMALL INTESTINAL ULCER HAEMORRHAGE [None]
